FAERS Safety Report 16780989 (Version 7)
Quarter: 2021Q4

REPORT INFORMATION
  Report Type: Spontaneous
  Country: US (occurrence: US)
  Receive Date: 20190906
  Receipt Date: 20211013
  Transmission Date: 20220304
  Serious: Yes (Other)
  Sender: FDA-Public Use
  Company Number: US-PFIZER INC-2019387760

PATIENT
  Age: 61 Year
  Sex: Female
  Weight: 65.77 kg

DRUGS (5)
  1. PREMARIN [Suspect]
     Active Substance: ESTROGENS, CONJUGATED
     Indication: Pruritus
     Dosage: APPLIED A PEA SIZE OF CREAM THREE TIMES A WEEK
     Route: 067
  2. DETROL LA [Suspect]
     Active Substance: TOLTERODINE TARTRATE
     Indication: Bladder disorder
     Dosage: 2 MG, DAILY (IN MORNING AFTER BREAKFAST   )
     Route: 048
     Dates: start: 2010
  3. DETROL LA [Suspect]
     Active Substance: TOLTERODINE TARTRATE
     Indication: Hypertonic bladder
  4. FLUCONAZOLE [Concomitant]
     Active Substance: FLUCONAZOLE
     Indication: Fungal infection
     Dosage: UNK
  5. LEVAQUIN [Concomitant]
     Active Substance: LEVOFLOXACIN
     Indication: Urinary tract infection
     Dosage: UNK

REACTIONS (17)
  - Intestinal polyp [Unknown]
  - Lymphoma [Unknown]
  - Diverticulitis [Unknown]
  - Laryngeal pain [Unknown]
  - Cognitive disorder [Unknown]
  - Hypertension [Unknown]
  - Feeling abnormal [Unknown]
  - Gastrointestinal disorder [Not Recovered/Not Resolved]
  - Parathyroid disorder [Unknown]
  - Memory impairment [Unknown]
  - Crying [Unknown]
  - Mood altered [Unknown]
  - Blood triglycerides increased [Unknown]
  - Vitamin D decreased [Recovered/Resolved]
  - Headache [Unknown]
  - Bone pain [Unknown]
  - Myalgia [Unknown]

NARRATIVE: CASE EVENT DATE: 20211005
